FAERS Safety Report 4398839-4 (Version None)
Quarter: 2004Q2

REPORT INFORMATION
  Report Type: 
  Country: None (occurrence: None)
  Receive Date: 20040621
  Receipt Date: 20040213
  Transmission Date: 20050107
  Serious: Yes (Death)
  Sender: FDA-Public Use
  Company Number: USA-2003-0007484

PATIENT
  Age: 47 Year
  Sex: Male
  Weight: 74.8 kg

DRUGS (9)
  1. OXYCODONE HCL [Suspect]
  2. HYDROCODONE BITARTRATE [Suspect]
  3. DIHYDROCODINE/ CAFFEINE/ ACETAMINOPHEN (SIMILAR TO ANDA 88-584) (DIHYD [Suspect]
  4. HYDROMORPHONE HYDROCHLORIDE [Suspect]
  5. CARISOPRODOL [Suspect]
  6. MEPROBAMATE [Suspect]
  7. DIPHENHYDRAMINE HCL [Suspect]
  8. NICOTINE [Suspect]
  9. ZOLPIDEM (ZOLPIDEM) [Suspect]

REACTIONS (2)
  - ACCIDENTAL OVERDOSE [None]
  - MULTIPLE DRUG OVERDOSE [None]
